FAERS Safety Report 25596452 (Version 2)
Quarter: 2025Q3

REPORT INFORMATION
  Report Type: Spontaneous
  Country: US (occurrence: US)
  Receive Date: 20250723
  Receipt Date: 20250818
  Transmission Date: 20251021
  Serious: No
  Sender: CSL BEHRING
  Company Number: US-BEH-2025213590

PATIENT
  Age: 70 Year
  Sex: Female

DRUGS (1)
  1. PRIVIGEN [Suspect]
     Active Substance: HUMAN IMMUNOGLOBULIN G
     Indication: Immunodeficiency common variable
     Dosage: 40 G, QMT (Q4 WEEKS)
     Route: 042
     Dates: start: 20190827

REACTIONS (1)
  - Blood potassium decreased [Unknown]

NARRATIVE: CASE EVENT DATE: 20250702
